FAERS Safety Report 8506867-X (Version None)
Quarter: 2012Q3

REPORT INFORMATION
  Report Type: 
  Country: None (occurrence: None)
  Receive Date: 20120712
  Receipt Date: 20120706
  Transmission Date: 20120928
  Serious: No
  Sender: FDA-Public Use
  Company Number: US-PFIZER INC-2012131147

PATIENT
  Sex: Female
  Weight: 81.633 kg

DRUGS (7)
  1. NORVASC [Suspect]
     Indication: HYPERTENSION
     Dosage: 5 MG, 1X/DAY
     Route: 048
  2. LEVOTHYROXINE [Concomitant]
     Dosage: 25 UG, DAILY
  3. TOPROL-XL [Concomitant]
     Indication: HYPERTENSION
     Dosage: 50 MG, 1X/DAY
  4. RANITIDINE [Concomitant]
     Indication: PROPHYLAXIS AGAINST GASTROINTESTINAL ULCER
     Dosage: 150 MG, 2X/DAY
  5. LEVAQUIN [Concomitant]
     Dosage: 500 MG, DAILY
  6. DIGOXIN [Concomitant]
     Dosage: 0.125 MG, DAILY
  7. WARFARIN [Concomitant]
     Dosage: 5 MG, DAILY

REACTIONS (3)
  - OEDEMA PERIPHERAL [None]
  - SECRETION DISCHARGE [None]
  - ERYTHEMA [None]
